FAERS Safety Report 10708286 (Version 1)
Quarter: 2015Q1

REPORT INFORMATION
  Report Type: Spontaneous
  Country: US (occurrence: US)
  Receive Date: 20150113
  Receipt Date: 20150113
  Transmission Date: 20150721
  Serious: Yes (Death, Other)
  Sender: FDA-Public Use
  Company Number: US-BAYER-2015-000978

PATIENT
  Age: 17 Year
  Sex: Male

DRUGS (6)
  1. DIPHENHYDRAMINE HYDROCHLORIDE. [Suspect]
     Active Substance: DIPHENHYDRAMINE HYDROCHLORIDE
  2. MITRAGYNINE [Suspect]
     Active Substance: MITRAGYNINE
     Indication: DRUG ABUSE
  3. CLONAZEPAM. [Concomitant]
     Active Substance: CLONAZEPAM
  4. MITRAGYNINE [Suspect]
     Active Substance: MITRAGYNINE
     Indication: BACK PAIN
  5. DEXTROMETHORPHAN [Concomitant]
     Active Substance: DEXTROMETHORPHAN
  6. TEMAZEPAM. [Concomitant]
     Active Substance: TEMAZEPAM

REACTIONS (6)
  - Vomiting [None]
  - Pulmonary oedema [None]
  - Toxicity to various agents [Fatal]
  - Drug level increased [None]
  - Pulmonary congestion [None]
  - Bladder dilatation [None]
